FAERS Safety Report 6171083-6 (Version None)
Quarter: 2009Q2

REPORT INFORMATION
  Report Type: 
  Country: None (occurrence: None)
  Receive Date: 20090429
  Receipt Date: 20090417
  Transmission Date: 20091009
  Serious: Yes (Other)
  Sender: FDA-Public Use
  Company Number: PHHY2009BR14693

PATIENT
  Age: 72 Year
  Sex: Female

DRUGS (1)
  1. EXELON [Suspect]
     Dosage: 9 MG/5 CM2, UNK
     Route: 062

REACTIONS (2)
  - INFECTION [None]
  - UPPER LIMB FRACTURE [None]
